FAERS Safety Report 8903269 (Version 1)
Quarter: 2012Q4

REPORT INFORMATION
  Report Type: 
  Country: GB (occurrence: GB)
  Receive Date: 20121113
  Receipt Date: 20121113
  Transmission Date: 20130627
  Serious: Yes (Other)
  Sender: FDA-Public Use
  Company Number: GB-ROCHE-CID000000002221680

PATIENT
  Age: 16 Year
  Sex: Male
  Weight: 69.85 kg

DRUGS (1)
  1. ISOTRETINOIN [Suspect]
     Indication: ACNE
     Route: 048
     Dates: start: 20120924, end: 20121024

REACTIONS (9)
  - Acute psychosis [Not Recovered/Not Resolved]
  - Anxiety [Unknown]
  - Decreased appetite [Not Recovered/Not Resolved]
  - Hallucination, auditory [Unknown]
  - Crying [Unknown]
  - Depression [Not Recovered/Not Resolved]
  - Apathy [Not Recovered/Not Resolved]
  - Panic attack [Not Recovered/Not Resolved]
  - Suicidal ideation [Unknown]
